FAERS Safety Report 11263298 (Version 1)
Quarter: 2015Q3

REPORT INFORMATION
  Report Type: Spontaneous
  Country: FR (occurrence: FR)
  Receive Date: 20150712
  Receipt Date: 20150712
  Transmission Date: 20151125
  Serious: Yes (Hospitalization)
  Sender: FDA-Public Use
  Company Number: FR-JNJFOC-20150703746

PATIENT
  Age: 70 Year
  Sex: Female

DRUGS (11)
  1. HEPARIN [Suspect]
     Active Substance: HEPARIN SODIUM
     Indication: PRODUCT USED FOR UNKNOWN INDICATION
     Dosage: 16-FEB-2015 TO 23-FEB-2015
     Route: 042
     Dates: start: 20150223, end: 20150227
  2. LASILIX [Concomitant]
     Active Substance: FUROSEMIDE
     Route: 065
  3. LOVENOX [Suspect]
     Active Substance: ENOXAPARIN SODIUM
     Indication: ATRIAL FIBRILLATION
     Dosage: 16-FEB-2015 TO 23-FEB-2015
     Route: 058
     Dates: start: 20150228, end: 20150307
  4. SERETIDE [Concomitant]
     Active Substance: FLUTICASONE FUROATE\SALMETEROL XINAFOATE
     Route: 065
  5. REMICADE [Suspect]
     Active Substance: INFLIXIMAB
     Indication: PRODUCT USED FOR UNKNOWN INDICATION
     Dosage: 3 RD DOSE
     Route: 042
     Dates: start: 20150105
  6. INEXIUM [Concomitant]
     Active Substance: ESOMEPRAZOLE
     Route: 065
  7. TRAMADOL. [Concomitant]
     Active Substance: TRAMADOL
     Route: 065
  8. CORTANCYL [Concomitant]
     Active Substance: PREDNISONE
     Route: 065
  9. REMICADE [Suspect]
     Active Substance: INFLIXIMAB
     Indication: PRODUCT USED FOR UNKNOWN INDICATION
     Dosage: PER CYCLE
     Route: 042
     Dates: start: 20141105
  10. REMICADE [Suspect]
     Active Substance: INFLIXIMAB
     Indication: PRODUCT USED FOR UNKNOWN INDICATION
     Dosage: 2 ND DOSE
     Route: 042
     Dates: start: 20141201
  11. CORDARONE [Concomitant]
     Active Substance: AMIODARONE HYDROCHLORIDE
     Route: 065

REACTIONS (8)
  - Pneumocystis jirovecii infection [Recovering/Resolving]
  - Pancytopenia [Unknown]
  - Atrial fibrillation [Unknown]
  - Histiocytosis haematophagic [Unknown]
  - Muscle haemorrhage [Unknown]
  - Decreased appetite [Unknown]
  - Shock haemorrhagic [Unknown]
  - Arrhythmia [Unknown]

NARRATIVE: CASE EVENT DATE: 2015
